FAERS Safety Report 9536772 (Version 1)
Quarter: 2013Q3

REPORT INFORMATION
  Report Type: Spontaneous
  Country: CH (occurrence: CH)
  Receive Date: 20130919
  Receipt Date: 20130919
  Transmission Date: 20140515
  Serious: Yes (Hospitalization)
  Sender: FDA-Public Use
  Company Number: CH-SANOFI-AVENTIS-2013SA091046

PATIENT
  Age: 86 Year
  Sex: Male

DRUGS (8)
  1. STILNOX [Suspect]
     Indication: PRODUCT USED FOR UNKNOWN INDICATION
     Route: 048
     Dates: end: 20130719
  2. ASPIRIN CARDIO [Concomitant]
     Dosage: 100 MG
     Route: 048
  3. CORDARONE [Concomitant]
     Dosage: 200 MG
     Route: 048
  4. CONCOR [Concomitant]
     Dosage: 2.5 MG
     Route: 048
  5. TRIATEC [Concomitant]
     Dosage: 2.5MG
     Route: 048
  6. ELTROXIN [Concomitant]
     Dosage: 50 G
     Route: 048
  7. PANTOZOL [Concomitant]
     Dosage: 20 MG
     Route: 048
  8. LANTUS [Concomitant]
     Dosage: FORM: PRE FILLED SYRINGES, PENS?STRENGTH: UNSPECIFIED.
     Route: 058

REACTIONS (4)
  - Therapeutic response increased [Recovered/Resolved]
  - Somnolence [Recovered/Resolved]
  - Disorientation [Recovered/Resolved]
  - Agitation [Recovered/Resolved]
